FAERS Safety Report 4660964-8 (Version None)
Quarter: 2005Q2

REPORT INFORMATION
  Report Type: 
  Country: None (occurrence: None)
  Receive Date: 20050511
  Receipt Date: 20050429
  Transmission Date: 20051028
  Serious: Yes (Hospitalization, Other)
  Sender: FDA-Public Use
  Company Number: KII-2005-0016422

PATIENT
  Age: 27 Year
  Sex: Female

DRUGS (4)
  1. MORPHINE SULFATE [Suspect]
     Indication: PAIN
     Dosage: ORAL
     Route: 048
  2. ATENOLOL [Suspect]
     Dosage: ORAL
     Route: 048
  3. BENZODIAZEPINE DERIVATES [Suspect]
  4. ACETAMINOPHEN [Suspect]

REACTIONS (16)
  - BODY TEMPERATURE INCREASED [None]
  - BRADYCARDIA [None]
  - DEPRESSED LEVEL OF CONSCIOUSNESS [None]
  - DEPRESSION [None]
  - DRUG SCREEN POSITIVE [None]
  - FLAT AFFECT [None]
  - HYPOTENSION [None]
  - INJURY [None]
  - INTENTIONAL MISUSE [None]
  - MULTIPLE DRUG OVERDOSE [None]
  - PNEUMONIA ASPIRATION [None]
  - RESPIRATORY DEPRESSION [None]
  - RHONCHI [None]
  - SOMNOLENCE [None]
  - VENTRICULAR EXTRASYSTOLES [None]
  - WHEEZING [None]
